FAERS Safety Report 6361522-X (Version None)
Quarter: 2009Q3

REPORT INFORMATION
  Report Type: 
  Country: None (occurrence: None)
  Receive Date: 20090916
  Receipt Date: 20090916
  Transmission Date: 20100115
  Serious: Yes (Life-Threatening)
  Sender: FDA-Public Use
  Company Number: None

PATIENT
  Sex: Female
  Weight: 63.9572 kg

DRUGS (1)
  1. OXYCODONE HCL [Suspect]
     Indication: PAIN
     Dosage: 2TAB. EVERY 4 HRS
     Dates: start: 20081222, end: 20090501

REACTIONS (8)
  - AGEUSIA [None]
  - ANOSMIA [None]
  - DECREASED APPETITE [None]
  - DRY SKIN [None]
  - MEMORY IMPAIRMENT [None]
  - NAUSEA [None]
  - SKIN EXFOLIATION [None]
  - WEIGHT DECREASED [None]
